FAERS Safety Report 8208818-4 (Version None)
Quarter: 2012Q1

REPORT INFORMATION
  Report Type: 
  Country: None (occurrence: None)
  Receive Date: 20120314
  Receipt Date: 20120306
  Transmission Date: 20120608
  Serious: Yes (Hospitalization, Other)
  Sender: FDA-Public Use
  Company Number: US-PFIZER INC-2012062216

PATIENT
  Sex: Female

DRUGS (2)
  1. LO/OVRAL-28 [Suspect]
     Indication: CONTRACEPTION
     Route: 064
  2. LO/OVRAL-28 [Suspect]

REACTIONS (5)
  - MATERNAL EXPOSURE TIMING UNSPECIFIED [None]
  - RECTAL HAEMORRHAGE [None]
  - CHOKING [None]
  - GASTROOESOPHAGEAL REFLUX DISEASE [None]
  - HYPOXIA [None]
